FAERS Safety Report 13550688 (Version 1)
Quarter: 2017Q2

REPORT INFORMATION
  Report Type: Spontaneous
  Country: US (occurrence: US)
  Receive Date: 20170516
  Receipt Date: 20170516
  Transmission Date: 20170830
  Serious: No
  Sender: FDA-Public Use
  Company Number: None

PATIENT
  Age: 75 Year
  Sex: Female
  Weight: 76.27 kg

DRUGS (14)
  1. FEXOFENADINE [Concomitant]
     Active Substance: FEXOFENADINE\FEXOFENADINE HYDROCHLORIDE
  2. FISH OIL [Concomitant]
     Active Substance: FISH OIL
  3. AMBIEN [Concomitant]
     Active Substance: ZOLPIDEM TARTRATE
  4. ALBUTEROL. [Concomitant]
     Active Substance: ALBUTEROL
  5. MULTI-VIT [Concomitant]
     Active Substance: VITAMINS
  6. VITAMIN C [Concomitant]
     Active Substance: ASCORBIC ACID
  7. ASPIRIN. [Concomitant]
     Active Substance: ASPIRIN
  8. PRAVASTATIN 10MG [Suspect]
     Active Substance: PRAVASTATIN
     Indication: BLOOD CHOLESTEROL ABNORMAL
     Route: 048
     Dates: start: 20160121, end: 20160125
  9. GARLIC. [Concomitant]
     Active Substance: GARLIC
  10. IBUPROFEN. [Concomitant]
     Active Substance: IBUPROFEN
  11. TRAZODONE [Concomitant]
     Active Substance: TRAZODONE HYDROCHLORIDE
  12. BENICAR HCT [Concomitant]
     Active Substance: HYDROCHLOROTHIAZIDE\OLMESARTAN MEDOXOMIL
  13. OMEPRAZOLE. [Concomitant]
     Active Substance: OMEPRAZOLE
  14. VITAMIN D [Concomitant]
     Active Substance: CHOLECALCIFEROL

REACTIONS (6)
  - Arthralgia [None]
  - Therapy cessation [None]
  - Muscle atrophy [None]
  - Muscular weakness [None]
  - Gait disturbance [None]
  - Movement disorder [None]

NARRATIVE: CASE EVENT DATE: 20160121
